FAERS Safety Report 10915585 (Version 2)
Quarter: 2015Q2

REPORT INFORMATION
  Report Type: Spontaneous
  Country: US (occurrence: US)
  Receive Date: 20150316
  Receipt Date: 20150402
  Transmission Date: 20150821
  Serious: No
  Sender: FDA-Public Use
  Company Number: US-PFIZER INC-2015088282

PATIENT
  Age: 58 Year
  Sex: Male

DRUGS (2)
  1. DILANTIN [Suspect]
     Active Substance: PHENYTOIN
     Dosage: UNK
  2. ZYPREXA [Suspect]
     Active Substance: OLANZAPINE
     Dosage: UNK

REACTIONS (3)
  - Allergy to arthropod sting [Unknown]
  - Arthropod sting [Unknown]
  - Drug hypersensitivity [Unknown]
